FAERS Safety Report 4976205-8 (Version None)
Quarter: 2006Q2

REPORT INFORMATION
  Report Type: 
  Country: None (occurrence: None)
  Receive Date: 20060419
  Receipt Date: 20060315
  Transmission Date: 20061013
  Serious: Yes (Death, Hospitalization)
  Sender: FDA-Public Use
  Company Number: FR-NOVOPROD-251650

PATIENT
  Age: 76 Year
  Sex: Male

DRUGS (13)
  1. ESOMEPRAZOLE [Concomitant]
  2. NOVONORM [Suspect]
     Indication: INSULIN-REQUIRING TYPE II DIABETES MELLITUS
     Dosage: 8.5 MG, UNK
     Route: 048
     Dates: start: 20060120, end: 20060211
  3. CIFLOX [Concomitant]
     Dosage: 500 MG, QD
     Route: 048
     Dates: start: 20060116, end: 20060211
  4. HALDOL [Concomitant]
     Dosage: 20 MG, QD
     Dates: start: 20060131
  5. CORTANCYL [Concomitant]
     Dosage: 30 MG, QD
     Route: 048
     Dates: start: 20060207
  6. TRIFLUCAN [Concomitant]
     Dosage: 400 MG, QD
     Route: 048
     Dates: start: 20060116, end: 20060211
  7. TRIFLUCAN [Concomitant]
     Dosage: 200 MG, QD
     Route: 048
  8. ZELITREX                                /DEN/ [Concomitant]
  9. LANTUS [Concomitant]
  10. NOVORAPID [Concomitant]
     Indication: DIABETES MELLITUS
  11. IMUREL [Concomitant]
  12. VANCOMYCIN [Concomitant]
     Dates: start: 20060101
  13. ZYVOXID [Concomitant]
     Dosage: 600 UNK, UNK
     Dates: start: 20060116, end: 20060118

REACTIONS (3)
  - ACIDOSIS [None]
  - HEPATITIS [None]
  - RESPIRATORY FAILURE [None]
